FAERS Safety Report 7720615-2 (Version None)
Quarter: 2011Q3

REPORT INFORMATION
  Report Type: 
  Country: None (occurrence: None)
  Receive Date: 20110831
  Receipt Date: 20110819
  Transmission Date: 20111222
  Serious: Yes (Other)
  Sender: FDA-Public Use
  Company Number: PHEH2008US06596

PATIENT
  Sex: Male

DRUGS (28)
  1. LASIX [Concomitant]
  2. ASPIRIN [Concomitant]
     Dosage: 81 MG, QD
     Route: 048
  3. GLUCOSAMINE SULFATE [Concomitant]
     Dosage: 750 MG, BID
  4. PLENDIL [Concomitant]
     Dosage: 5 MG, QD
  5. GLUCOSAMINE [Concomitant]
     Dosage: 500 MG, TID
  6. LISINOPRIL [Concomitant]
  7. GARLIC [Concomitant]
     Dosage: 500 MG, BID
     Route: 048
  8. GLUCOVANCE [Concomitant]
  9. CELEXA [Concomitant]
     Dosage: 60 MG, QHS
  10. AMITRIPTYLINE HCL [Concomitant]
  11. LIPITOR [Concomitant]
     Dosage: 40 MG, QD
     Route: 048
  12. FISH OIL [Concomitant]
     Dosage: 1000 MG, QD
  13. TOPROL-XL [Concomitant]
  14. FELDENE [Concomitant]
  15. CELEBREX [Concomitant]
     Dosage: 200 MG, QD
  16. AREDIA [Suspect]
     Indication: BONE DISORDER
     Dates: end: 20020101
  17. NAPROSYN [Concomitant]
     Dosage: 500 MG, PRN
  18. RANITIDINE [Concomitant]
  19. LIPITOR [Concomitant]
  20. ASPIRIN [Concomitant]
  21. LANSOPRAZOLE [Concomitant]
     Dosage: 30 MG, QD
     Route: 048
  22. ZOMETA [Suspect]
     Indication: BONE DISORDER
     Dates: start: 20020606
  23. FOSAMAX [Suspect]
     Dates: start: 20010101, end: 20020201
  24. PLAVIX [Concomitant]
  25. MEXITIL [Concomitant]
     Dosage: 150 MG, TID
  26. AMOXICILLIN [Concomitant]
     Dosage: 500 MG, QD
     Route: 048
  27. MULTI-VITAMINS [Concomitant]
     Route: 048
  28. BENADRYL [Concomitant]

REACTIONS (39)
  - NEUROPATHY PERIPHERAL [None]
  - INJURY [None]
  - PERIODONTITIS [None]
  - PULMONARY HYPERTENSION [None]
  - LEFT VENTRICULAR HYPERTROPHY [None]
  - PAIN [None]
  - BLADDER CANCER [None]
  - COUGH [None]
  - DILATATION ATRIAL [None]
  - SINUS CONGESTION [None]
  - ANXIETY [None]
  - ABSCESS [None]
  - OSTEOPOROSIS [None]
  - PULMONARY EMBOLISM [None]
  - PATHOLOGICAL FRACTURE [None]
  - HERPES ZOSTER [None]
  - BRONCHITIS [None]
  - MITRAL VALVE INCOMPETENCE [None]
  - CARDIAC FAILURE CONGESTIVE [None]
  - DYSPNOEA [None]
  - OEDEMA PERIPHERAL [None]
  - OSTEONECROSIS OF JAW [None]
  - ATRIAL FIBRILLATION [None]
  - LYMPHADENITIS [None]
  - DYSLIPIDAEMIA [None]
  - MYOCARDIAL INFARCTION [None]
  - ARTHRALGIA [None]
  - DECREASED INTEREST [None]
  - GASTROOESOPHAGEAL REFLUX DISEASE [None]
  - HYPERPLASIA [None]
  - NEOPLASM MALIGNANT [None]
  - CARDIOMYOPATHY [None]
  - ANEURYSM [None]
  - EJECTION FRACTION DECREASED [None]
  - SPINAL OSTEOARTHRITIS [None]
  - RHINORRHOEA [None]
  - ORAL CAVITY FISTULA [None]
  - SCOLIOSIS [None]
  - CHRONIC OBSTRUCTIVE PULMONARY DISEASE [None]
